FAERS Safety Report 4604843-0 (Version None)
Quarter: 2005Q1

REPORT INFORMATION
  Report Type: 
  Country: None (occurrence: None)
  Receive Date: 20050311
  Receipt Date: 20050301
  Transmission Date: 20050727
  Serious: Yes (Death)
  Sender: FDA-Public Use
  Company Number: JP-JNJFOC-20030904257

PATIENT
  Sex: Female
  Weight: 20 kg

DRUGS (16)
  1. REMICADE [Suspect]
     Route: 042
  2. REMICADE [Suspect]
     Indication: CROHN'S DISEASE
     Route: 042
  3. SOLU-MEDROL [Concomitant]
     Dosage: 28-94 MG DAILY.
     Route: 042
     Dates: start: 20030523, end: 20030824
  4. PROGRAF [Concomitant]
     Route: 049
     Dates: start: 20030523, end: 20030824
  5. CELLCEPT [Concomitant]
     Route: 049
     Dates: start: 20030523, end: 20030824
  6. FOSCAVIR [Concomitant]
     Route: 042
     Dates: start: 20030630, end: 20030824
  7. GASTER [Concomitant]
     Route: 042
     Dates: start: 20030626, end: 20030716
  8. FUNGUARD [Concomitant]
     Route: 042
     Dates: start: 20030709, end: 20030824
  9. BAKTAR [Concomitant]
     Route: 049
     Dates: start: 20030523, end: 20030824
  10. BAKTAR [Concomitant]
     Route: 049
     Dates: start: 20030523, end: 20030824
  11. NORVASC [Concomitant]
     Route: 049
     Dates: start: 20030523, end: 20030824
  12. ALFAROL [Concomitant]
     Route: 049
     Dates: start: 20030523, end: 20030716
  13. BOBURON [Concomitant]
     Route: 049
     Dates: start: 20030523, end: 20030716
  14. FUNGIZONE SY [Concomitant]
     Route: 049
     Dates: start: 20030523, end: 20030824
  15. CYCLOPHOSPHAMIDE [Concomitant]
     Route: 042
     Dates: start: 20030618, end: 20030809
  16. TPN [Concomitant]
     Route: 065

REACTIONS (4)
  - DISEASE PROGRESSION [None]
  - GRAFT VERSUS HOST DISEASE [None]
  - INTERSTITIAL LUNG DISEASE [None]
  - PSEUDOMONAS INFECTION [None]
